FAERS Safety Report 6068429-6 (Version None)
Quarter: 2009Q1

REPORT INFORMATION
  Report Type: 
  Country: None (occurrence: None)
  Receive Date: 20090121
  Receipt Date: 20080320
  Transmission Date: 20090719
  Serious: Yes (Other)
  Sender: FDA-Public Use
  Company Number: HQ1752104OCT2000

PATIENT
  Age: 67 Year
  Sex: Female
  Weight: 68.55 kg

DRUGS (7)
  1. PREMPRO [Suspect]
     Dosage: 0.625MG/2.5 MG DAILY, ORAL
     Route: 048
     Dates: start: 19900101, end: 20000601
  2. ESTROGENS SOL/INJ [Suspect]
  3. MEDROXYPROGESTERONE [Suspect]
  4. PREMARIN [Suspect]
     Dosage: ORAL
     Route: 048
  5. PROVERA [Suspect]
     Dosage: ORAL
     Route: 048
  6. LEVOXYL [Concomitant]
  7. CLARITIN [Concomitant]

REACTIONS (1)
  - BREAST CANCER FEMALE [None]
